FAERS Safety Report 25665824 (Version 1)
Quarter: 2025Q3

REPORT INFORMATION
  Report Type: Spontaneous
  Country: US (occurrence: None)
  Receive Date: 20250808
  Receipt Date: 20250808
  Transmission Date: 20251020
  Serious: Yes (Other)
  Sender: FDA-CTU
  Company Number: None

PATIENT
  Age: 59 Year
  Sex: Female

DRUGS (9)
  1. PRALUENT [Suspect]
     Active Substance: ALIROCUMAB
     Indication: Blood cholesterol increased
     Route: 058
     Dates: start: 20250602, end: 20250616
  2. ROSUVASTATIN [Suspect]
     Active Substance: ROSUVASTATIN
  3. EZETIMIBE [Suspect]
     Active Substance: EZETIMIBE
  4. ROSUVASTATIN [Concomitant]
     Active Substance: ROSUVASTATIN
  5. EZETIMIBE [Concomitant]
     Active Substance: EZETIMIBE
  6. VITAMIN E [Concomitant]
     Active Substance: .ALPHA.-TOCOPHEROL
  7. ASPIRIN [Concomitant]
     Active Substance: ASPIRIN
  8. DOCUSATE SODIUM\SENNOSIDES [Concomitant]
     Active Substance: DOCUSATE SODIUM\SENNOSIDES
  9. TYLENOL [Concomitant]
     Active Substance: ACETAMINOPHEN

REACTIONS (8)
  - Pruritus [None]
  - Pain [None]
  - Joint swelling [None]
  - Injection site pain [None]
  - Rhinorrhoea [None]
  - Periorbital swelling [None]
  - Muscle tightness [None]
  - Pharyngeal swelling [None]

NARRATIVE: CASE EVENT DATE: 20250602
